FAERS Safety Report 17244484 (Version 10)
Quarter: 2021Q2

REPORT INFORMATION
  Report Type: Spontaneous
  Country: US (occurrence: US)
  Receive Date: 20200107
  Receipt Date: 20210428
  Transmission Date: 20210716
  Serious: Yes (Hospitalization, Other)
  Sender: FDA-Public Use
  Company Number: US-GILEAD-2020-0445105

PATIENT
  Age: 54 Year
  Sex: Female
  Weight: 68.03 kg

DRUGS (114)
  1. PREDNISONE. [Concomitant]
     Active Substance: PREDNISONE
  2. HYDRALAZINE [Concomitant]
     Active Substance: HYDRALAZINE HYDROCHLORIDE
  3. BENZONATATE. [Concomitant]
     Active Substance: BENZONATATE
  4. ROCEPHIN [Concomitant]
     Active Substance: CEFTRIAXONE SODIUM
  5. FERROUS SULFATE. [Concomitant]
     Active Substance: FERROUS SULFATE
  6. NORVASC [Concomitant]
     Active Substance: AMLODIPINE BESYLATE
  7. PREMARIN [Concomitant]
     Active Substance: ESTROGENS, CONJUGATED
  8. TRUVADA [Suspect]
     Active Substance: EMTRICITABINE\TENOFOVIR DISOPROXIL FUMARATE
     Dosage: 1 DOSAGE FORM, QD
     Route: 048
     Dates: start: 20171005, end: 20180129
  9. CALCIUM 500+D [Concomitant]
     Active Substance: CALCIUM\VITAMIN D
  10. ZOLMITRIPTAN. [Concomitant]
     Active Substance: ZOLMITRIPTAN
  11. MUPIROCIN. [Concomitant]
     Active Substance: MUPIROCIN
  12. NYSTATIN. [Concomitant]
     Active Substance: NYSTATIN
  13. ADVIL [Concomitant]
     Active Substance: IBUPROFEN
  14. AMPICILLIN [Concomitant]
     Active Substance: AMPICILLIN
  15. TETRACYCLINE [Concomitant]
     Active Substance: TETRACYCLINE
  16. CARVEDILOL. [Concomitant]
     Active Substance: CARVEDILOL
  17. EZETIMIBE. [Concomitant]
     Active Substance: EZETIMIBE
  18. DIFLUCAN [Concomitant]
     Active Substance: FLUCONAZOLE
  19. DOCUSATE [Concomitant]
     Active Substance: DOCUSATE
  20. CEFDINIR. [Concomitant]
     Active Substance: CEFDINIR
  21. IMODIUM [Concomitant]
     Active Substance: LOPERAMIDE HYDROCHLORIDE
  22. TRUVADA [Suspect]
     Active Substance: EMTRICITABINE\TENOFOVIR DISOPROXIL FUMARATE
     Dosage: UNK
     Route: 048
     Dates: start: 200807, end: 200808
  23. DIPHENOXYLATE/ATROPINE [Concomitant]
     Active Substance: ATROPINE\DIPHENOXYLATE
  24. ZYRTEC [Concomitant]
     Active Substance: CETIRIZINE HYDROCHLORIDE
  25. CHERATUSSIN AC [Concomitant]
     Active Substance: CODEINE PHOSPHATE\GUAIFENESIN
  26. FLOVENT [Concomitant]
     Active Substance: FLUTICASONE PROPIONATE
  27. PRILOSEC [Concomitant]
     Active Substance: OMEPRAZOLE MAGNESIUM
  28. ACYCLOVIR [ACICLOVIR] [Concomitant]
     Active Substance: ACYCLOVIR
  29. ATORVASTATIN [Concomitant]
     Active Substance: ATORVASTATIN
  30. LOPID [Concomitant]
     Active Substance: GEMFIBROZIL
  31. NASACORT [Concomitant]
     Active Substance: TRIAMCINOLONE ACETONIDE
  32. XYLOCAINE [Concomitant]
     Active Substance: LIDOCAINE HYDROCHLORIDE
  33. LACTULOSE. [Concomitant]
     Active Substance: LACTULOSE
  34. POLYETHYLENE GLYCOL 3350. [Concomitant]
     Active Substance: POLYETHYLENE GLYCOL 3350
  35. MONTELUKAST SODIUM. [Concomitant]
     Active Substance: MONTELUKAST SODIUM
  36. LEVAQUIN [Concomitant]
     Active Substance: LEVOFLOXACIN
  37. GENTAMICIN. [Concomitant]
     Active Substance: GENTAMICIN
  38. ASTELIN [Concomitant]
     Active Substance: AZELASTINE HYDROCHLORIDE
  39. TRUVADA [Suspect]
     Active Substance: EMTRICITABINE\TENOFOVIR DISOPROXIL FUMARATE
     Dosage: 200 MG?300 MG, QD
     Route: 048
     Dates: start: 20160429, end: 20170220
  40. TRUVADA [Suspect]
     Active Substance: EMTRICITABINE\TENOFOVIR DISOPROXIL FUMARATE
     Dosage: UNK
     Route: 048
     Dates: start: 20100610, end: 20111030
  41. TRIUMEQ [Concomitant]
     Active Substance: ABACAVIR SULFATE\DOLUTEGRAVIR SODIUM\LAMIVUDINE
  42. ZOMIG [Concomitant]
     Active Substance: ZOLMITRIPTAN
  43. AMOXICILLIN. [Concomitant]
     Active Substance: AMOXICILLIN
  44. DEXAMETHASONE. [Concomitant]
     Active Substance: DEXAMETHASONE
  45. ATENOLOL. [Concomitant]
     Active Substance: ATENOLOL
  46. MIRALAX [Concomitant]
     Active Substance: POLYETHYLENE GLYCOL 3350
  47. GLUCOSE [Concomitant]
     Active Substance: DEXTROSE
  48. ELIQUIS [Concomitant]
     Active Substance: APIXABAN
  49. COZAAR [Concomitant]
     Active Substance: LOSARTAN POTASSIUM
  50. TRUVADA [Suspect]
     Active Substance: EMTRICITABINE\TENOFOVIR DISOPROXIL FUMARATE
     Dosage: 200 MG/300 MG, QD
     Route: 048
     Dates: start: 20111031, end: 20170412
  51. TRUVADA [Suspect]
     Active Substance: EMTRICITABINE\TENOFOVIR DISOPROXIL FUMARATE
     Dosage: UNK
     Route: 048
     Dates: start: 20170722, end: 20180225
  52. ZANTAC [Concomitant]
     Active Substance: RANITIDINE HYDROCHLORIDE
  53. DIPHENHYDRAMINE. [Concomitant]
     Active Substance: DIPHENHYDRAMINE
  54. LEVOXYL [Concomitant]
     Active Substance: LEVOTHYROXINE SODIUM
  55. ALBUTEROL SULFATE. [Concomitant]
     Active Substance: ALBUTEROL SULFATE
  56. IBUPROFEN. [Concomitant]
     Active Substance: IBUPROFEN
  57. TYLENOL [Concomitant]
     Active Substance: ACETAMINOPHEN
  58. BACTRIM [Concomitant]
     Active Substance: SULFAMETHOXAZOLE\TRIMETHOPRIM
  59. DEXTROSE. [Concomitant]
     Active Substance: DEXTROSE
  60. NITROFURANTOIN. [Concomitant]
     Active Substance: NITROFURANTOIN
  61. PROMETHAZINE ? CODEINE [CODEINE PHOSPHATE;PROMETHAZINE HYDROCHLORIDE] [Concomitant]
  62. BETAMETHASONE DIPROPRIONATE [Concomitant]
     Active Substance: BETAMETHASONE DIPROPIONATE
  63. TRUVADA [Suspect]
     Active Substance: EMTRICITABINE\TENOFOVIR DISOPROXIL FUMARATE
     Dosage: UNK
     Route: 048
     Dates: start: 200808, end: 20100609
  64. TRUVADA [Suspect]
     Active Substance: EMTRICITABINE\TENOFOVIR DISOPROXIL FUMARATE
     Dosage: UNK
     Route: 048
     Dates: start: 20111031, end: 20170721
  65. LEVOTHYROXINE. [Concomitant]
     Active Substance: LEVOTHYROXINE
  66. PROBIOTIC [BIFIDOBACTERIUM LACTIS] [Concomitant]
     Active Substance: BIFIDOBACTERIUM ANIMALIS LACTIS
  67. CORTISONE [Concomitant]
     Active Substance: CORTISONE
  68. SIMVASTATIN. [Concomitant]
     Active Substance: SIMVASTATIN
  69. MIDAZOLAM. [Concomitant]
     Active Substance: MIDAZOLAM
  70. CLONIDINE. [Concomitant]
     Active Substance: CLONIDINE
  71. MORPHINE [Concomitant]
     Active Substance: MORPHINE
  72. BENADRYL ALLERGY [Concomitant]
     Active Substance: DIPHENHYDRAMINE HYDROCHLORIDE
  73. AZITHROMYCIN ANHYDROUS. [Concomitant]
     Active Substance: AZITHROMYCIN ANHYDROUS
  74. ZYRTEC [Concomitant]
     Active Substance: CETIRIZINE HYDROCHLORIDE
  75. MECLIZINE [Concomitant]
     Active Substance: MECLIZINE HYDROCHLORIDE
  76. INSULIN H R [Concomitant]
  77. ASPIRIN [ACETYLSALICYLIC ACID] [Concomitant]
     Active Substance: ASPIRIN
  78. ZOSYN [Concomitant]
     Active Substance: PIPERACILLIN SODIUM\TAZOBACTAM SODIUM
  79. CRESTOR [Concomitant]
     Active Substance: ROSUVASTATIN CALCIUM
  80. MEDROL [Concomitant]
     Active Substance: METHYLPREDNISOLONE
  81. TRUVADA [Suspect]
     Active Substance: EMTRICITABINE\TENOFOVIR DISOPROXIL FUMARATE
     Dosage: UNK
     Route: 048
     Dates: start: 200807, end: 20180225
  82. FIBER [Concomitant]
     Active Substance: PSYLLIUM HUSK
  83. PANTOPRAZOLE [Concomitant]
     Active Substance: PANTOPRAZOLE
  84. PENICILLIN NOS [Concomitant]
     Active Substance: PENICILLIN
  85. ZOFRAN [Concomitant]
     Active Substance: ONDANSETRON HYDROCHLORIDE
  86. PROMETHAZINE [Concomitant]
     Active Substance: PROMETHAZINE HYDROCHLORIDE
  87. MUCINEX [Concomitant]
     Active Substance: GUAIFENESIN
  88. RANITIDINE. [Concomitant]
     Active Substance: RANITIDINE
  89. ESOMEPRAZOLE. [Concomitant]
     Active Substance: ESOMEPRAZOLE MAGNESIUM
  90. SYNTHROID [Concomitant]
     Active Substance: LEVOTHYROXINE SODIUM
  91. TRUVADA [Suspect]
     Active Substance: EMTRICITABINE\TENOFOVIR DISOPROXIL FUMARATE
     Indication: HIV INFECTION
     Dosage: 200 MG?300 MG, QD
     Route: 048
     Dates: start: 200807, end: 20180222
  92. LOSARTAN. [Concomitant]
     Active Substance: LOSARTAN
  93. LOMOTIL [LOPERAMIDE HYDROCHLORIDE] [Concomitant]
     Active Substance: LOPERAMIDE HYDROCHLORIDE
  94. ACETAMINOPHEN. [Concomitant]
     Active Substance: ACETAMINOPHEN
  95. RANITIDINE. [Concomitant]
     Active Substance: RANITIDINE
  96. FENTANYL. [Concomitant]
     Active Substance: FENTANYL
  97. PATANASE [Concomitant]
     Active Substance: OLOPATADINE HYDROCHLORIDE
  98. LOMOTIL [Concomitant]
     Active Substance: ATROPINE SULFATE\DIPHENOXYLATE HYDROCHLORIDE
  99. CALCIUM GLUCONATE. [Concomitant]
     Active Substance: CALCIUM GLUCONATE
  100. HYOSCYAMINE. [Concomitant]
     Active Substance: HYOSCYAMINE
  101. SILVER SULFADIAZINE. [Concomitant]
     Active Substance: SILVER SULFADIAZINE
  102. NAPROXEN. [Concomitant]
     Active Substance: NAPROXEN
  103. CIPROFLOXACIN. [Concomitant]
     Active Substance: CIPROFLOXACIN
  104. PRAVASTATIN. [Concomitant]
     Active Substance: PRAVASTATIN
  105. FENOFIBRATE. [Concomitant]
     Active Substance: FENOFIBRATE
  106. TRUVADA [Suspect]
     Active Substance: EMTRICITABINE\TENOFOVIR DISOPROXIL FUMARATE
     Dosage: UNK
     Route: 065
     Dates: start: 20170722, end: 201803
  107. VITAMIN B12 [Concomitant]
     Active Substance: CYANOCOBALAMIN
  108. KALETRA [Concomitant]
     Active Substance: LOPINAVIR\RITONAVIR
  109. OMEPRAZOLE. [Concomitant]
     Active Substance: OMEPRAZOLE
  110. PROAIR HFA [Concomitant]
     Active Substance: ALBUTEROL SULFATE
  111. PHENERGAN [Concomitant]
     Active Substance: PROMETHAZINE HYDROCHLORIDE
  112. PREDNISOLONE. [Concomitant]
     Active Substance: PREDNISOLONE
  113. TURMERIC [CURCUMA LONGA] [Concomitant]
     Active Substance: HERBALS\TURMERIC
  114. GANCICLOVIR. [Concomitant]
     Active Substance: GANCICLOVIR

REACTIONS (25)
  - Chronic kidney disease [Not Recovered/Not Resolved]
  - Abdominal pain [Unknown]
  - Acute coronary syndrome [Recovered/Resolved]
  - Fanconi syndrome acquired [Not Recovered/Not Resolved]
  - Bone density decreased [Unknown]
  - Acute kidney injury [Recovered/Resolved]
  - Renal tubular necrosis [Not Recovered/Not Resolved]
  - Fatigue [Unknown]
  - Emotional distress [Not Recovered/Not Resolved]
  - Metabolic acidosis [Not Recovered/Not Resolved]
  - Patella fracture [Recovered/Resolved]
  - Hypokalaemia [Recovered/Resolved]
  - Osteopenia [Recovered/Resolved]
  - Economic problem [Not Recovered/Not Resolved]
  - Rib fracture [Recovered/Resolved]
  - Renal failure [Recovering/Resolving]
  - Anxiety [Not Recovered/Not Resolved]
  - Osteoporosis postmenopausal [Not Recovered/Not Resolved]
  - Foot fracture [Recovered/Resolved]
  - Glycosuria [Not Recovered/Not Resolved]
  - Hyperkalaemia [Recovered/Resolved]
  - Anhedonia [Not Recovered/Not Resolved]
  - Pain [Not Recovered/Not Resolved]
  - Hypophosphataemia [Recovering/Resolving]
  - Tubulointerstitial nephritis [Recovered/Resolved]

NARRATIVE: CASE EVENT DATE: 20080912
